FAERS Safety Report 5326856-6 (Version None)
Quarter: 2007Q2

REPORT INFORMATION
  Report Type: 
  Country: None (occurrence: None)
  Receive Date: 20070511
  Receipt Date: 20070501
  Transmission Date: 20071010
  Serious: Yes (Death, Hospitalization)
  Sender: FDA-Public Use
  Company Number: WAES 0705USA00514

PATIENT
  Age: 81 Year
  Sex: Female

DRUGS (11)
  1. HYZAAR [Suspect]
     Indication: HYPERTENSION
     Dosage: 50-12.5 MG/DAILY PO
     Route: 048
     Dates: start: 20070209, end: 20070402
  2. ADETPHOS [Concomitant]
  3. COZAAR [Concomitant]
  4. FLUITRAN [Concomitant]
  5. HYPERIUM [Concomitant]
  6. CYANOCOBALAMIN [Concomitant]
  7. MEVALOTIN [Concomitant]
  8. KETOPROFEN [Concomitant]
  9. MUCOSTA [Concomitant]
  10. NORVASC [Concomitant]
  11. SOLANAX [Concomitant]

REACTIONS (1)
  - INTERSTITIAL LUNG DISEASE [None]
